FAERS Safety Report 13900096 (Version 1)
Quarter: 2017Q3

REPORT INFORMATION
  Report Type: Spontaneous
  Country: US (occurrence: US)
  Receive Date: 20170824
  Receipt Date: 20170824
  Transmission Date: 20171127
  Serious: Yes (Other)
  Sender: FDA-Public Use
  Company Number: PHEH2017US026525

PATIENT
  Sex: Male

DRUGS (4)
  1. AMIODARONE ZYDUS [Suspect]
     Active Substance: AMIODARONE
     Indication: ATRIAL FIBRILLATION
     Route: 065
  2. AMIODARONE TEVA [Suspect]
     Active Substance: AMIODARONE
     Indication: ATRIAL FIBRILLATION
     Route: 065
  3. AMIODARONE HYDROCHLORIDE. [Suspect]
     Active Substance: AMIODARONE HYDROCHLORIDE
     Indication: ATRIAL FIBRILLATION
     Dosage: 200 MG, UNK
     Route: 048
     Dates: start: 201501
  4. AMIODARONE HYDROCHLORIDE. [Suspect]
     Active Substance: AMIODARONE HYDROCHLORIDE
     Indication: ATRIAL FIBRILLATION
     Route: 065

REACTIONS (19)
  - Blindness [Unknown]
  - Pulmonary toxicity [Unknown]
  - Asthenia [Unknown]
  - Wheezing [Unknown]
  - Visual impairment [Unknown]
  - Product use in unapproved indication [Unknown]
  - Chronic obstructive pulmonary disease [Unknown]
  - Pulmonary oedema [Unknown]
  - Cough [Unknown]
  - Oedema [Unknown]
  - Dyspnoea [Unknown]
  - Renal disorder [Unknown]
  - Thyroid disorder [Unknown]
  - Fatigue [Unknown]
  - Anaemia [Unknown]
  - Pulmonary embolism [Unknown]
  - Pneumonia [Unknown]
  - Depression [Unknown]
  - Anxiety [Unknown]

NARRATIVE: CASE EVENT DATE: 201501
